FAERS Safety Report 6170515-7 (Version None)
Quarter: 2009Q2

REPORT INFORMATION
  Report Type: 
  Country: None (occurrence: None)
  Receive Date: 20090427
  Receipt Date: 20090427
  Transmission Date: 20091009
  Serious: Yes (Life-Threatening)
  Sender: FDA-Public Use
  Company Number: None

PATIENT
  Age: 50 Year
  Sex: Female

DRUGS (8)
  1. WARFARIN SODIUM [Suspect]
     Indication: PULMONARY EMBOLISM
     Dosage: 3 MG PO QHS
     Route: 048
     Dates: start: 20090118, end: 20090124
  2. LOVENOX [Suspect]
     Dosage: 120 MG SQ @ Q D
     Route: 058
     Dates: start: 20090115, end: 20090124
  3. ATIVAN [Concomitant]
  4. CIPROFLOXACIN HCL [Concomitant]
  5. DEXAMETHASONE TAB [Concomitant]
  6. MOTRIN [Concomitant]
  7. ZOFRAN [Concomitant]
  8. PROCHLORPERAZINE [Concomitant]

REACTIONS (8)
  - HAEMORRHAGE [None]
  - HYPERHIDROSIS [None]
  - INTERNATIONAL NORMALISED RATIO INCREASED [None]
  - LUNG INFILTRATION [None]
  - NAUSEA [None]
  - PALLOR [None]
  - TACHYCARDIA [None]
  - VOMITING [None]
